FAERS Safety Report 4330495-3 (Version None)
Quarter: 2004Q2

REPORT INFORMATION
  Report Type: 
  Country: None (occurrence: None)
  Receive Date: 20040401
  Receipt Date: 20040401
  Transmission Date: 20050107
  Serious: Yes (Life-Threatening, Congenital Anomaly, Other)
  Sender: FDA-Public Use
  Company Number: None

PATIENT
  Age: 38 Year
  Sex: Male
  Weight: 119 kg

DRUGS (1)
  1. PAXIL [Suspect]
     Indication: DEPRESSION
     Dates: start: 19930516, end: 20040331

REACTIONS (8)
  - DIZZINESS [None]
  - DRUG WITHDRAWAL SYNDROME [None]
  - DYSKINESIA [None]
  - STRESS SYMPTOMS [None]
  - THINKING ABNORMAL [None]
  - TIC [None]
  - TINNITUS [None]
  - TREMOR [None]
